FAERS Safety Report 7858804-9 (Version None)
Quarter: 2011Q4

REPORT INFORMATION
  Report Type: 
  Country: None (occurrence: None)
  Receive Date: 20111027
  Receipt Date: 20111019
  Transmission Date: 20120403
  Serious: Yes (Death, Other)
  Sender: FDA-Public Use
  Company Number: TR-JNJFOC-20080701235

PATIENT
  Age: 7 Decade
  Sex: Male

DRUGS (4)
  1. DURAGESIC-100 [Suspect]
     Route: 062
  2. TRAMADOL HCL [Suspect]
     Indication: PRODUCT USED FOR UNKNOWN INDICATION
     Route: 065
  3. ENOXAPARIN [Concomitant]
     Indication: PROPHYLAXIS
     Route: 065
  4. DURAGESIC-100 [Suspect]
     Indication: RADICULAR PAIN
     Route: 062

REACTIONS (4)
  - PULMONARY EMBOLISM [None]
  - DRUG INEFFECTIVE [None]
  - MEDICATION ERROR [None]
  - SUDDEN DEATH [None]
